FAERS Safety Report 9891026 (Version 2)
Quarter: 2014Q2

REPORT INFORMATION
  Report Type: Spontaneous
  Country: US (occurrence: US)
  Receive Date: 20140212
  Receipt Date: 20140407
  Transmission Date: 20141212
  Serious: Yes (Other)
  Sender: FDA-Public Use
  Company Number: US-JNJFOC-20140203325

PATIENT
  Sex: Male

DRUGS (10)
  1. ZYTIGA [Suspect]
     Indication: PRODUCT USED FOR UNKNOWN INDICATION
     Dosage: 250 MG STRENGTH, 4 DAILY STARTED APPROXIMATELY 2-3 MONTHS
     Route: 048
  2. PREDNISONE [Suspect]
     Indication: PRODUCT USED FOR UNKNOWN INDICATION
     Route: 048
  3. LUPRON DEPOT [Concomitant]
     Indication: NEOPLASM MALIGNANT
     Route: 065
  4. XGEVA [Concomitant]
     Indication: BONE DISORDER
     Route: 065
  5. GLIPIZIDE [Concomitant]
     Indication: BLOOD GLUCOSE ABNORMAL
     Route: 065
  6. METFORMIN [Concomitant]
     Indication: BLOOD GLUCOSE ABNORMAL
     Route: 065
  7. METOPROLOL XL [Concomitant]
     Indication: HYPERTENSION
     Route: 065
  8. BENACORT [Concomitant]
     Indication: HYPERTENSION
     Route: 065
  9. NEXIUM [Concomitant]
     Indication: GASTROOESOPHAGEAL REFLUX DISEASE
     Route: 065
  10. CRESTOR [Concomitant]
     Indication: BLOOD CHOLESTEROL INCREASED
     Route: 065

REACTIONS (1)
  - Bladder neoplasm [Unknown]
